FAERS Safety Report 8763052 (Version 1)
Quarter: 2012Q4

REPORT INFORMATION
  Report Type: Spontaneous
  Country: US (occurrence: None)
  Receive Date: 20120830
  Receipt Date: 20120830
  Transmission Date: 20130627
  Serious: No
  Sender: FDA-Public Use
  Company Number: None

PATIENT
  Age: 64 Year
  Sex: Male
  Weight: 78.47 kg

DRUGS (1)
  1. ATORVASTATIN [Suspect]
     Indication: BLOOD CHOLESTEROL
     Dosage: 1 Daily po
     Route: 048
     Dates: start: 20120801, end: 20120808

REACTIONS (4)
  - Myalgia [None]
  - Lethargy [None]
  - Fatigue [None]
  - Product substitution issue [None]
